FAERS Safety Report 23716832 (Version 1)
Quarter: 2024Q2

REPORT INFORMATION
  Report Type: Spontaneous
  Country: PE (occurrence: PE)
  Receive Date: 20240408
  Receipt Date: 20240408
  Transmission Date: 20240717
  Serious: Yes (Hospitalization)
  Sender: FDA-Public Use
  Company Number: PE-NOVITIUMPHARMA-2024PENVP00418

PATIENT
  Age: 29 Year
  Sex: Male

DRUGS (2)
  1. PREDNISONE [Suspect]
     Active Substance: PREDNISONE
     Indication: Polymyositis
     Dosage: 8H FOR 3 DAYS
     Route: 048
  2. PREDNISONE [Suspect]
     Active Substance: PREDNISONE
     Dosage: 8H FOR 5 DAYS
     Route: 048

REACTIONS (2)
  - Strongyloidiasis [Recovered/Resolved]
  - Intentional product misuse [Unknown]
